FAERS Safety Report 9868145 (Version 3)
Quarter: 2014Q2

REPORT INFORMATION
  Report Type: Report from Study
  Country: US (occurrence: US)
  Receive Date: 20140204
  Receipt Date: 20140414
  Transmission Date: 20141212
  Serious: Yes (Hospitalization, Other)
  Sender: FDA-Public Use
  Company Number: PHEH2014US002372

PATIENT
  Age: 62 Year
  Sex: Male
  Weight: 87.39 kg

DRUGS (4)
  1. DIOVAN [Suspect]
     Indication: HYPERTENSION
     Dosage: 320 MG, PER DAY
     Route: 048
  2. SIMVASTATIN [Suspect]
     Indication: BLOOD CHOLESTEROL INCREASED
     Dosage: 1 DF, AT BED TIME
     Route: 048
  3. AMLODIPINE BESYLATE [Suspect]
     Indication: HYPERTENSION
     Dosage: 1 DF, PER DAY IN EVENING
  4. ASPIRIN [Suspect]
     Dosage: 1 DF, PER DAY WITH FOOD

REACTIONS (3)
  - Hypertension [Recovering/Resolving]
  - Dizziness [Unknown]
  - Cerebrovascular accident [Unknown]
